FAERS Safety Report 8373972-0 (Version None)
Quarter: 2012Q2

REPORT INFORMATION
  Report Type: 
  Country: None (occurrence: None)
  Receive Date: 20120521
  Receipt Date: 20120511
  Transmission Date: 20120825
  Serious: Yes (Hospitalization)
  Sender: FDA-Public Use
  Company Number: JP-EISAI INC-E7389-02439-CLI-JP

PATIENT
  Sex: Female
  Weight: 46 kg

DRUGS (13)
  1. HALAVEN [Suspect]
     Indication: METASTASES TO BONE
  2. DIART [Concomitant]
     Route: 048
  3. HALAVEN [Suspect]
     Indication: METASTASES TO PLEURA
  4. RIZE [Concomitant]
     Route: 048
  5. HALAVEN [Suspect]
     Indication: METASTASES TO LIVER
     Route: 041
     Dates: start: 20111004, end: 20111004
  6. ZETIA [Concomitant]
     Route: 048
  7. CANDESARTAN CILEXETIL [Concomitant]
     Route: 048
  8. DIGOXIN [Concomitant]
     Route: 048
  9. DEPAS [Concomitant]
  10. VERAPAMIL HCL [Concomitant]
     Route: 048
  11. HALAVEN [Suspect]
     Indication: BREAST CANCER RECURRENT
     Route: 041
     Dates: start: 20111025, end: 20120322
  12. CARVEDILOL [Concomitant]
     Route: 048
  13. ALDACTONE [Concomitant]
     Route: 048

REACTIONS (1)
  - CARDIAC FAILURE CONGESTIVE [None]
